FAERS Safety Report 26010919 (Version 2)
Quarter: 2025Q4

REPORT INFORMATION
  Report Type: Report from Study
  Country: US (occurrence: US)
  Receive Date: 20251107
  Receipt Date: 20251107
  Transmission Date: 20260117
  Serious: No
  Sender: SANDOZ
  Company Number: US-SANDOZ-SDZ2025US081744

PATIENT
  Sex: Female

DRUGS (1)
  1. GLATOPA [Suspect]
     Active Substance: GLATIRAMER ACETATE
     Indication: Multiple sclerosis
     Dosage: 40 MG, Q48H
     Route: 058

REACTIONS (7)
  - Malaise [Unknown]
  - Tearfulness [Unknown]
  - Gait disturbance [Unknown]
  - Tremor [Unknown]
  - Product dose omission issue [Unknown]
  - Device difficult to use [Unknown]
  - Device mechanical issue [Unknown]
